FAERS Safety Report 13062201 (Version 1)
Quarter: 2016Q4

REPORT INFORMATION
  Report Type: Spontaneous
  Country: US (occurrence: US)
  Receive Date: 20161226
  Receipt Date: 20161226
  Transmission Date: 20170207
  Serious: Yes (Other)
  Sender: FDA-Public Use
  Company Number: US-ELI_LILLY_AND_COMPANY-US201612009373

PATIENT
  Age: 45 Year
  Sex: Male

DRUGS (1)
  1. CETUXIMAB [Suspect]
     Active Substance: CETUXIMAB
     Indication: LARYNGEAL SQUAMOUS CELL CARCINOMA
     Dosage: UNK UNK, UNKNOWN
     Route: 065
     Dates: end: 201306

REACTIONS (3)
  - Jugular vein thrombosis [Unknown]
  - Intracranial pressure increased [Unknown]
  - Papilloedema [Recovering/Resolving]

NARRATIVE: CASE EVENT DATE: 201307
